FAERS Safety Report 23468141 (Version 3)
Quarter: 2024Q1

REPORT INFORMATION
  Report Type: Report from Study
  Country: FR (occurrence: FR)
  Receive Date: 20240201
  Receipt Date: 20240229
  Transmission Date: 20240409
  Serious: Yes (Other)
  Sender: FDA-Public Use
  Company Number: FR-ABBVIE-5421090

PATIENT
  Age: 74 Year
  Sex: Male
  Weight: 50 kg

DRUGS (4)
  1. CARBIDOPA\LEVODOPA [Suspect]
     Active Substance: CARBIDOPA\LEVODOPA
     Indication: Parkinson^s disease
     Route: 050
     Dates: start: 20230619, end: 20230922
  2. CARBIDOPA\LEVODOPA [Suspect]
     Active Substance: CARBIDOPA\LEVODOPA
     Dosage: NIGHT FLOW: 1 ML/H?LAST ADMIN DATE 2023
     Route: 050
     Dates: start: 20230922
  3. CARBIDOPA\LEVODOPA [Suspect]
     Active Substance: CARBIDOPA\LEVODOPA
     Dosage: EXTRA DOSE: 3.5 ML?FIRST ADMIN DATE 2023
     Route: 050
     Dates: end: 20240201
  4. CARBIDOPA\LEVODOPA [Suspect]
     Active Substance: CARBIDOPA\LEVODOPA
     Dosage: MORNING DOSE 14ML, DAYTIME FLOW 7 AM-11 PM 4.9 ML/H; NIGHT FLOW 11 PM-7 AM 1ML/H
     Route: 050
     Dates: start: 20240202

REACTIONS (3)
  - Tremor [Not Recovered/Not Resolved]
  - Therapeutic product effect incomplete [Unknown]
  - Freezing phenomenon [Unknown]

NARRATIVE: CASE EVENT DATE: 20230901
